FAERS Safety Report 8595143-5 (Version None)
Quarter: 2012Q3

REPORT INFORMATION
  Report Type: 
  Country: None (occurrence: None)
  Receive Date: 20120807
  Receipt Date: 20120807
  Transmission Date: 20120928
  Serious: Yes (Hospitalization)
  Sender: FDA-Public Use
  Company Number: None

PATIENT
  Age: 35 Year
  Sex: Female
  Weight: 68.0396 kg

DRUGS (2)
  1. ESCITALOPRAM [Suspect]
     Indication: DEPRESSION
     Dosage: 20 MG DAILY ORAL 047 MANY MONTHS
     Route: 048
  2. METAXOLONE 800 MG LABEL NOT AVAILABLE [Suspect]
     Indication: BACK PAIN
     Dosage: 800 MG TWICE ORAL 047
     Route: 048
     Dates: start: 20120412, end: 20120413

REACTIONS (6)
  - RESTLESSNESS [None]
  - TACHYCARDIA [None]
  - SEROTONIN SYNDROME [None]
  - MOVEMENT DISORDER [None]
  - DRUG INTERACTION [None]
  - HYPERHIDROSIS [None]
